FAERS Safety Report 5427384-X (Version None)
Quarter: 2007Q3

REPORT INFORMATION
  Report Type: 
  Country: None (occurrence: None)
  Receive Date: 20070823
  Receipt Date: 20070812
  Transmission Date: 20080115
  Serious: Yes (Death)
  Sender: FDA-Public Use
  Company Number: CERZ-11844

PATIENT
  Age: 2 Year
  Sex: Male
  Weight: 8.5 kg

DRUGS (1)
  1. CEREZYME [Suspect]
     Indication: GAUCHER'S DISEASE
     Dosage: 120 UG/KG IV
     Route: 042
     Dates: start: 20060701, end: 20070728

REACTIONS (2)
  - CHOKING [None]
  - LOWER RESPIRATORY TRACT INFECTION [None]
